FAERS Safety Report 7518573-9 (Version None)
Quarter: 2011Q2

REPORT INFORMATION
  Report Type: 
  Country: None (occurrence: None)
  Receive Date: 20110523
  Receipt Date: 20110506
  Transmission Date: 20111010
  Serious: Yes (Other)
  Sender: FDA-Public Use
  Company Number: AUR-APL-2011-01594

PATIENT
  Age: 32 Year
  Sex: Female

DRUGS (4)
  1. ZOPICLONE [Concomitant]
  2. PROPRANOLOL MR [Concomitant]
  3. PAROXETINE HCL [Suspect]
     Indication: DEPRESSION
     Dosage: 30 MG - ORAL
     Route: 048
     Dates: start: 20110301
  4. DIAZEPAM [Concomitant]

REACTIONS (5)
  - PANIC ATTACK [None]
  - CONDITION AGGRAVATED [None]
  - BURNING SENSATION [None]
  - MALAISE [None]
  - PARAESTHESIA [None]
